FAERS Safety Report 16610201 (Version 1)
Quarter: 2019Q3

REPORT INFORMATION
  Report Type: Spontaneous
  Country: DE (occurrence: DE)
  Receive Date: 20190722
  Receipt Date: 20190722
  Transmission Date: 20191004
  Serious: Yes (Hospitalization)
  Sender: FDA-Public Use
  Company Number: DE-TEVA-2019-DE-1080246

PATIENT
  Age: 63 Year
  Sex: Male
  Weight: 73 kg

DRUGS (15)
  1. BENZOCAINE. [Concomitant]
     Active Substance: BENZOCAINE
     Dosage: 1-1-1-0, MOUTHWASH SOLUTION
     Route: 061
  2. AMPHO-MORONAL LUTSCHTABLETTEN [Concomitant]
     Dosage: 10 MG, SCHEMATIC, LOZENGES
     Route: 048
  3. FRESUBIN [Concomitant]
     Active Substance: AMINO ACIDS\DEXTROSE\ELECTROLYTES NOS\SOYBEAN OIL\VITAMINS
     Dosage: 1 BOTTLE, 1-1-1-1, DRINKING FOOD
     Route: 048
  4. NOVALGIN (METAMIZOLE SODIUM) [Concomitant]
     Active Substance: METAMIZOLE SODIUM
     Dosage: 40 GTT, 1-1-1-1, DROPS
     Route: 048
  5. CAPHOSOL [Concomitant]
     Active Substance: CALCIUM CHLORIDE\SODIUM CHLORIDE\SODIUM PHOSPHATE, DIBASIC, ANHYDROUS\SODIUM PHOSPHATE, MONOBASIC, ANHYDROUS
     Dosage: 7.8|4.8|1.35 MG, 1-1-1-1, MOUTHWASH SOLUTION
     Route: 061
  6. CISPLATIN. [Suspect]
     Active Substance: CISPLATIN
     Dosage: 100 MG/M2, REGIMEN, SOLUTION FOR INJECTION/INFUSION
     Route: 042
  7. FLUOROURACIL. [Suspect]
     Active Substance: FLUOROURACIL
     Dosage: 1000 MG/M2, REGIMEN, SOLUTION FOR INJECTION/INFUSION
     Route: 042
  8. PANTOPRAZOL [Concomitant]
     Active Substance: PANTOPRAZOLE SODIUM
     Dosage: 40 MG, 1-0-0-0, TABLETS
     Route: 048
  9. ONDANSETRON [Concomitant]
     Active Substance: ONDANSETRON
     Dosage: 8 MG, SCHEME, TABLETS
     Route: 048
  10. TILIDIN/NALOXON BETA 100 MG/8 MG RETARDTABLETTEN [Concomitant]
     Dosage: 100|8 MG, 1-0-0-0, PROLONGED-RELEASE TABLETS
     Route: 048
  11. CIPROFLOXACIN. [Concomitant]
     Active Substance: CIPROFLOXACIN
     Dosage: 500 MG, SCHEME, TABLETS
     Route: 048
  12. L-THYROXIN [Concomitant]
     Active Substance: LEVOTHYROXINE SODIUM
     Dosage: 50 MICROGRAMS, 1-0-0-0, TABLETS
     Route: 048
  13. CETUXIMAB. [Suspect]
     Active Substance: CETUXIMAB
     Dosage: 250 MG/M2, REGIMEN, SOLUTION FOR INJECTION/INFUSION
     Route: 042
  14. KALIUM [Concomitant]
     Active Substance: POTASSIUM CHLORIDE
     Dosage: 1 BAG, 2-2-2-0, BAG
     Route: 048
  15. MOVICOL [Concomitant]
     Active Substance: POLYETHYLENE GLYCOL 3350\POTASSIUM CHLORIDE\SODIUM BICARBONATE\SODIUM CHLORIDE
     Dosage: 13.125|0.35|0.18|0.05 G, 2-0-0-0, BAG
     Route: 048

REACTIONS (6)
  - Dyspnoea [Unknown]
  - Musculoskeletal pain [Unknown]
  - Weight decreased [Unknown]
  - Mucosal inflammation [Unknown]
  - General physical health deterioration [Unknown]
  - Electrolyte imbalance [Unknown]
